FAERS Safety Report 10495390 (Version 2)
Quarter: 2014Q4

REPORT INFORMATION
  Report Type: Spontaneous
  Country: US (occurrence: US)
  Receive Date: 20141003
  Receipt Date: 20141211
  Transmission Date: 20150528
  Serious: No
  Sender: FDA-Public Use
  Company Number: US-009507513-1409USA014295

PATIENT
  Age: 43 Year
  Sex: Female
  Weight: 49.34 kg

DRUGS (6)
  1. WELLBUTRIN [Concomitant]
     Active Substance: BUPROPION HYDROCHLORIDE
     Dosage: LONG-TERM,  TOTAL DAILY DOSE 150 MG
     Route: 048
  2. LUNESTA [Concomitant]
     Active Substance: ESZOPICLONE
     Dosage: LONG TERM, PRN, TOTAL DAILY DOSE 1.5 MG
     Route: 048
  3. JANUMET [Suspect]
     Active Substance: METFORMIN HYDROCHLORIDE\SITAGLIPTIN PHOSPHATE
     Indication: TYPE 2 DIABETES MELLITUS
     Dosage: 50- 500 MG, TOTAL DAILY DOSE 100 TO 1000 MG
     Route: 048
     Dates: start: 20140627, end: 20140924
  4. SPIRONOLACTONE. [Concomitant]
     Active Substance: SPIRONOLACTONE
     Dosage: LONG TERM, TOTAL DAILY DOSE 50 MG
     Route: 048
  5. LEXAPRO [Concomitant]
     Active Substance: ESCITALOPRAM OXALATE
     Dosage: LONG-TERM,  TOTAL DAILY DOSE 20 MG
     Route: 048
  6. LORAZEPAM. [Concomitant]
     Active Substance: LORAZEPAM
     Dosage: LONG TERM, PRN, TOTAL DAILY DOSE 1 MG
     Route: 048

REACTIONS (2)
  - Alopecia [Recovered/Resolved]
  - Weight loss poor [Unknown]

NARRATIVE: CASE EVENT DATE: 2014
